FAERS Safety Report 19919477 (Version 2)
Quarter: 2021Q4

REPORT INFORMATION
  Report Type: Spontaneous
  Country: CN (occurrence: CN)
  Receive Date: 20211004
  Receipt Date: 20211105
  Transmission Date: 20220303
  Serious: Yes (Other)
  Sender: FDA-Public Use
  Company Number: CN-GILEAD-2021-0549609

PATIENT
  Sex: Male

DRUGS (1)
  1. VEMLIDY [Suspect]
     Active Substance: TENOFOVIR ALAFENAMIDE FUMARATE
     Indication: Hepatitis B
     Dosage: 1 DOSAGE FORM, QD
     Route: 048
     Dates: start: 202005

REACTIONS (1)
  - Hepatitis B DNA assay positive [Recovered/Resolved]

NARRATIVE: CASE EVENT DATE: 20210917
